FAERS Safety Report 24716558 (Version 4)
Quarter: 2025Q1

REPORT INFORMATION
  Report Type: Report from Study
  Country: US (occurrence: US)
  Receive Date: 20241210
  Receipt Date: 20250218
  Transmission Date: 20250409
  Serious: Yes (Other)
  Sender: ALEXION PHARMACEUTICALS
  Company Number: US-AstraZeneca-CH-00760527A

PATIENT

DRUGS (1)
  1. STRENSIQ [Suspect]
     Active Substance: ASFOTASE ALFA
     Indication: Hypophosphatasia

REACTIONS (8)
  - Intentional self-injury [Recovered/Resolved]
  - Self-injurious ideation [Recovered/Resolved]
  - Mood altered [Recovered/Resolved]
  - Poor quality sleep [Recovered/Resolved]
  - Blister [Not Recovered/Not Resolved]
  - Keloid scar [Recovered/Resolved]
  - Pain in extremity [Unknown]
  - Anxiety [Recovering/Resolving]
